FAERS Safety Report 9370933 (Version 1)
Quarter: 2013Q2

REPORT INFORMATION
  Report Type: Spontaneous
  Country: US (occurrence: US)
  Receive Date: 20130627
  Receipt Date: 20130627
  Transmission Date: 20140414
  Serious: Yes (Other)
  Sender: FDA-Public Use
  Company Number: US-AMGEN-USASP2013043978

PATIENT
  Age: 78 Year
  Sex: Female

DRUGS (7)
  1. PROLIA [Suspect]
     Indication: OSTEOPOROSIS POSTMENOPAUSAL
     Dosage: UNK
     Dates: start: 201304
  2. THYROID THERAPY [Concomitant]
  3. SPIRIVA [Concomitant]
  4. EYE DROPS                          /00256502/ [Concomitant]
  5. VITAMIN C                          /00008001/ [Concomitant]
  6. VITAMIN D                          /00107901/ [Concomitant]
  7. FISH OIL [Concomitant]

REACTIONS (8)
  - Depression [Unknown]
  - Panic attack [Unknown]
  - Anxiety [Unknown]
  - Dyspnoea [Unknown]
  - Tremor [Unknown]
  - Spinal fracture [Unknown]
  - Epistaxis [Unknown]
  - Malaise [Unknown]
